FAERS Safety Report 16450777 (Version 1)
Quarter: 2019Q2

REPORT INFORMATION
  Report Type: Spontaneous
  Country: US (occurrence: US)
  Receive Date: 20190619
  Receipt Date: 20190619
  Transmission Date: 20190711
  Serious: No
  Sender: FDA-Public Use
  Company Number: US-GALDERMA-US18038569

PATIENT
  Age: 42 Year
  Sex: Female

DRUGS (5)
  1. PROACTIV MD ADAPALENE ACNE TREATMENT [Suspect]
     Active Substance: ADAPALENE
     Indication: DERMAL CYST
     Dosage: 0.1%
     Route: 061
     Dates: start: 20180805, end: 20180817
  2. SYMBALTA [Concomitant]
  3. PROACTIV REFINING MASK [Concomitant]
     Active Substance: SULFUR
     Indication: DERMAL CYST
     Route: 061
     Dates: start: 20180805, end: 20180817
  4. PROACTIV MD DEEP CLEANSING FACE WASH [Concomitant]
     Active Substance: COSMETICS
     Indication: DERMAL CYST
     Route: 061
     Dates: start: 20180805, end: 20180817
  5. PROACTIV MD BALANCING TONER [Concomitant]
     Active Substance: COSMETICS
     Indication: DERMAL CYST
     Route: 061
     Dates: start: 20180805, end: 20180817

REACTIONS (4)
  - Inappropriate schedule of product administration [Recovered/Resolved]
  - Dry skin [Recovering/Resolving]
  - Overdose [Recovered/Resolved]
  - Acne [Recovering/Resolving]

NARRATIVE: CASE EVENT DATE: 20180805
